FAERS Safety Report 16340102 (Version 1)
Quarter: 2019Q2

REPORT INFORMATION
  Report Type: Spontaneous
  Country: PL (occurrence: PL)
  Receive Date: 20190522
  Receipt Date: 20190522
  Transmission Date: 20190711
  Serious: Yes (Death, Life-Threatening, Disabling, Other)
  Sender: FDA-Public Use
  Company Number: PL-AXELLIA-002473

PATIENT
  Age: 67 Year
  Sex: Female
  Weight: 70 kg

DRUGS (27)
  1. CLEXANE [Concomitant]
     Active Substance: ENOXAPARIN SODIUM
     Dosage: NO INFORMATION ON DOSAGE, STRENGTH : 4000 IU
     Route: 042
     Dates: start: 20181015, end: 20181115
  2. COSMOFER [Concomitant]
     Active Substance: IRON DEXTRAN
     Dosage: DOSE: 1G/100 ML, STRENGTH : 50 MG/ML
     Route: 042
     Dates: start: 20181017, end: 20181019
  3. HEPA-MERZ [Concomitant]
     Dosage: DOSE: 20 MG/DAY, STRENGTH : 0,5 G/ML
     Route: 041
     Dates: start: 20181116, end: 20181125
  4. IPP [Concomitant]
     Active Substance: PANTOPRAZOLE SODIUM
     Dosage: DOSE: 40 MG/DAY FROM 15/10/2018 TO 15/11/2018, STRENGTH : 40 MG
     Route: 042
  5. VIREGYT-K [Concomitant]
     Dosage: DOSE: 50 MG/DAY, STRENGTH : 100 MG
     Route: 048
     Dates: start: 20181024, end: 20181114
  6. PYRALGIN [METAMIZOLE SODIUM] [Concomitant]
     Active Substance: METAMIZOLE SODIUM
     Dosage: DOSE: 2.5 MG/100 ML ON 15/10/2018
     Route: 042
  7. OXYNORM [Concomitant]
     Active Substance: OXYCODONE HYDROCHLORIDE
     Dosage: DOSAGE: 2 MG/HOUR. DATES OF DRUG ADMINISTRATION: FROM 12/10/2018 TO 18/10/2018
     Route: 042
  8. AMANTIX [Concomitant]
     Dosage: DOSE: 500 ML (5H INFUSION)
     Route: 042
     Dates: start: 20181115, end: 20181117
  9. METOCARD ZK [Concomitant]
     Active Substance: METOPROLOL TARTRATE
     Dosage: DOSE: 95 MG
     Route: 048
     Dates: start: 20181016, end: 20181115
  10. PARACETAMOL [Concomitant]
     Active Substance: ACETAMINOPHEN
     Dosage: DOSE: 1 G/DAY
     Route: 042
     Dates: start: 20181015, end: 20181015
  11. VANCOMYCIN [Suspect]
     Active Substance: VANCOMYCIN
     Indication: KLEBSIELLA INFECTION
     Dosage: DATES OF DRUG ADMINISTRATION: 15/10/2018-21/10/2018 WITH BREAKS DESCRIBED IN CASE NARRATIVE.
     Route: 042
  12. MORPHINE [Suspect]
     Active Substance: MORPHINE
     Indication: PRODUCT USED FOR UNKNOWN INDICATION
     Dosage: DOSAGE: 60 MG+5 MG/H FOR 17 HOURS145 MG/DAY
     Route: 042
     Dates: start: 20181124, end: 20181125
  13. GENSULIN R [Suspect]
     Active Substance: INSULIN HUMAN
     Indication: DIABETES MELLITUS
     Dosage: DOSAGE FROM 25/10/2018 TO 15/11/2018 ACCORDING TO GLYCEMIC PROFILE. ON 16/11/2018
     Route: 042
  14. DEXAVEN [Concomitant]
     Active Substance: DEXAMETHASONE
     Dosage: DOSE: 8 MG/DAY, STRENGTH : 4 MG/ML
     Route: 042
     Dates: start: 20181122, end: 20181125
  15. CORHYDRON [Concomitant]
     Dosage: DOSE: 400 MG/DAY
     Route: 042
     Dates: start: 20181116, end: 20181121
  16. SODIUM BICARBONATE. [Concomitant]
     Active Substance: SODIUM BICARBONATE
     Dosage: DOSE: 100 MG
     Route: 042
     Dates: start: 20181115, end: 20181118
  17. LEVONOR [Concomitant]
     Dosage: DATE OF DRUG ADMINISTRATION AND DOSAGE: ?1.4 MG/HOUR FROM 12/10/2018 TO 16/10/2018.
     Route: 042
  18. VITACON [Concomitant]
     Dosage: DOSE: 2G/200 ML, STRENGTH : 10 MG/ML
     Route: 042
     Dates: start: 20181117, end: 20181117
  19. MEROPENEM. [Concomitant]
     Active Substance: MEROPENEM
     Dosage: DOSE: 3G/DAY/300 ML
     Route: 042
     Dates: start: 20181014, end: 20181020
  20. MEMOTROPIL [Concomitant]
     Active Substance: PIRACETAM
     Dosage: DOSE: 2.4 G/DAY. DATE OF DRUG ADMINISTRATION: 24/10/2018-15/11/2018; 16/11/2018-25/11/2018
     Route: 042
  21. IMIPENEM/CILASTATIN KABI [Suspect]
     Active Substance: CILASTATIN SODIUM\IMIPENEM
     Indication: PRODUCT USED FOR UNKNOWN INDICATION
     Dosage: DOSAGE: 4 G/DAY
     Route: 042
     Dates: start: 20181117, end: 20181125
  22. KWETAPLEX [Concomitant]
     Active Substance: QUETIAPINE FUMARATE
     Dosage: DOSE: 50 MG/DAY
     Route: 048
     Dates: start: 20181017, end: 20181101
  23. FUROSEMIDE. [Concomitant]
     Active Substance: FUROSEMIDE
     Dosage: DOSAGE: 5 MG/HOUR ALSO RECEIVED FROM 24-OCT-2018 TO 01-NOV-2018
     Route: 042
     Dates: start: 20181013, end: 20181023
  24. BETALOC [Concomitant]
     Active Substance: METOPROLOL TARTRATE
     Dosage: DOSE: 20 MG/DAY
     Route: 042
     Dates: start: 20181015, end: 20181015
  25. FINOSPIRIN [Concomitant]
     Dosage: DOSE: 50 MG/DAY
     Route: 048
     Dates: start: 20181023, end: 20181115
  26. CORDARONE [Concomitant]
     Active Substance: AMIODARONE HYDROCHLORIDE
     Dosage: DOSE: 900 MG/DAY
     Route: 041
     Dates: start: 20181115, end: 20181118
  27. DIGOXIN. [Concomitant]
     Active Substance: DIGOXIN
     Dosage: DOSE: 1 G
     Route: 042
     Dates: start: 20181015, end: 20181015

REACTIONS (32)
  - Tachyarrhythmia [Fatal]
  - Blood bilirubin increased [Fatal]
  - Hyperaemia [Fatal]
  - Hypoglycaemia [Fatal]
  - Anisocytosis [Fatal]
  - Creatinine renal clearance decreased [Fatal]
  - Red blood cell count decreased [Fatal]
  - Hyperkalaemia [Fatal]
  - Renal injury [Fatal]
  - Oliguria [Fatal]
  - Hepatitis fulminant [Fatal]
  - Macrocytosis [Fatal]
  - Loss of consciousness [Fatal]
  - Haemolytic anaemia [Fatal]
  - Central nervous system injury [Fatal]
  - Hypotonia [Fatal]
  - Hypoxia [Fatal]
  - Splenic injury [Fatal]
  - Thrombocytopenia [Fatal]
  - Acidosis [Fatal]
  - Bradycardia [Fatal]
  - Petechiae [Fatal]
  - Hyperchloraemia [Fatal]
  - Liver injury [Fatal]
  - Blood urea increased [Fatal]
  - Blood creatinine increased [Fatal]
  - Drug level above therapeutic [Unknown]
  - Tachycardia [Fatal]
  - Haemoglobin decreased [Fatal]
  - Hypochromasia [Fatal]
  - Blood pressure decreased [Fatal]
  - Overdose [Unknown]

NARRATIVE: CASE EVENT DATE: 20181118
